FAERS Safety Report 5877484-5 (Version None)
Quarter: 2008Q3

REPORT INFORMATION
  Report Type: 
  Country: None (occurrence: None)
  Receive Date: 20080909
  Receipt Date: 20080904
  Transmission Date: 20090109
  Serious: Yes (Death, Hospitalization, Other)
  Sender: FDA-Public Use
  Company Number: 2006-06-1099

PATIENT
  Age: 70 Year
  Sex: Female
  Weight: 55.4 kg

DRUGS (1)
  1. TEMODAR [Suspect]
     Indication: GLIOBLASTOMA MULTIFORME
     Dosage: 120 MG; PO
     Route: 048
     Dates: start: 20060411, end: 20060522

REACTIONS (6)
  - DISEASE PROGRESSION [None]
  - FEBRILE NEUTROPENIA [None]
  - GLIOBLASTOMA MULTIFORME [None]
  - HYPONATRAEMIA [None]
  - LEUKOPENIA [None]
  - PNEUMONIA [None]
